FAERS Safety Report 9326131 (Version 1)
Quarter: 2013Q2

REPORT INFORMATION
  Report Type: Spontaneous
  Country: US (occurrence: None)
  Receive Date: 20130603
  Receipt Date: 20130603
  Transmission Date: 20140414
  Serious: Yes (Hospitalization, Disabling, Other)
  Sender: FDA-Public Use
  Company Number: None

PATIENT
  Age: 54 Year
  Sex: Female
  Weight: 90.72 kg

DRUGS (1)
  1. ZOLOFT [Suspect]
     Indication: ANXIETY
     Route: 048
     Dates: start: 19950101, end: 20130601

REACTIONS (2)
  - Chest pain [None]
  - Heart rate increased [None]
